FAERS Safety Report 17987630 (Version 2)
Quarter: 2020Q3

REPORT INFORMATION
  Report Type: Other
  Country: DE (occurrence: DE)
  Receive Date: 20200707
  Receipt Date: 20200729
  Transmission Date: 20201103
  Serious: Yes (Death, Life-Threatening)
  Sender: FDA-Public Use
  Company Number: DE-TAIHO ONCOLOGY  INC-IM-2020-00522

PATIENT
  Age: 60 Year
  Sex: Male
  Weight: 110 kg

DRUGS (3)
  1. LONSURF [Suspect]
     Active Substance: TIPIRACIL HYDROCHLORIDE\TRIFLURIDINE
     Indication: OFF LABEL USE
     Dosage: 3 TABLETS 20MG/8.19 MG EACH MORNING AND EVETNING, 3?0?3
     Route: 048
     Dates: start: 20200224, end: 20200228
  2. LONSURF [Suspect]
     Active Substance: TIPIRACIL HYDROCHLORIDE\TRIFLURIDINE
     Dosage: 3 TABLETS  20MG/8.19 MG EACH MORNING AND EVENING; 3?0?3
     Route: 048
     Dates: start: 20200302, end: 20200306
  3. LONSURF [Suspect]
     Active Substance: TIPIRACIL HYDROCHLORIDE\TRIFLURIDINE
     Indication: OESOPHAGEAL CANCER METASTATIC
     Dosage: 15MG/6.14 MG, 2?0?2
     Route: 048
     Dates: start: 20200325, end: 20200326

REACTIONS (11)
  - Decreased appetite [Unknown]
  - Blood bilirubin increased [Fatal]
  - Transaminases increased [Fatal]
  - Yellow skin [Fatal]
  - Gait disturbance [Unknown]
  - Abdominal distension [Unknown]
  - Speech disorder [Unknown]
  - Dyspepsia [Unknown]
  - Asthenia [Unknown]
  - Hepatic failure [Fatal]
  - Blood alkaline phosphatase increased [Fatal]

NARRATIVE: CASE EVENT DATE: 2020
